FAERS Safety Report 6674800-1 (Version None)
Quarter: 2010Q2

REPORT INFORMATION
  Report Type: 
  Country: None (occurrence: None)
  Receive Date: 20100409
  Receipt Date: 20100406
  Transmission Date: 20101027
  Serious: Yes (Other)
  Sender: FDA-Public Use
  Company Number: US-B.I. PHARMACEUTICALS,INC./RIDGEFIELD-2010-BP-02352BP

PATIENT
  Sex: Male

DRUGS (22)
  1. SPIRIVA [Suspect]
     Indication: CHRONIC OBSTRUCTIVE PULMONARY DISEASE
     Dosage: 18 MCG
     Route: 055
     Dates: start: 20091201
  2. PULMICORT [Concomitant]
     Indication: CHRONIC OBSTRUCTIVE PULMONARY DISEASE
  3. ASACOL [Concomitant]
     Indication: COLITIS ULCERATIVE
  4. NEXIUM [Concomitant]
     Indication: GASTROOESOPHAGEAL REFLUX DISEASE
  5. FOLIC ACID [Concomitant]
     Indication: PROPHYLAXIS
  6. SIMVASTATIN [Concomitant]
     Indication: BLOOD CHOLESTEROL INCREASED
  7. VITAMINS [Concomitant]
     Indication: PROPHYLAXIS
  8. QUINAPRIL [Concomitant]
     Indication: HYPERTENSION
  9. SPIRONOLACTONE [Concomitant]
     Indication: HYPERTENSION
  10. GLYBURIDE [Concomitant]
     Indication: DIABETES MELLITUS
  11. COREG [Concomitant]
     Indication: CARDIOMEGALY
  12. IRON [Concomitant]
     Indication: PROPHYLAXIS
  13. FISH OIL [Concomitant]
     Indication: PROPHYLAXIS
  14. FUROSEMIDE [Concomitant]
     Indication: CARDIOMEGALY
  15. PERCOGESIC [Concomitant]
     Indication: NEURALGIA
  16. FLONASE [Concomitant]
     Indication: NASAL CONGESTION
  17. NASAL SPRAY [Concomitant]
     Indication: NASAL CONGESTION
  18. ISOSORBIDE DINITRATE [Concomitant]
     Indication: CARDIOMEGALY
  19. DAIRY SUPPLEMENT [Concomitant]
     Indication: LACTOSE INTOLERANCE
  20. FLOVENT [Concomitant]
     Indication: CHRONIC OBSTRUCTIVE PULMONARY DISEASE
  21. VENTOLIN [Concomitant]
     Indication: CHRONIC OBSTRUCTIVE PULMONARY DISEASE
  22. ASPIRIN [Concomitant]
     Indication: PROPHYLAXIS

REACTIONS (1)
  - HEPATIC CIRRHOSIS [None]
